FAERS Safety Report 25570046 (Version 2)
Quarter: 2025Q4

REPORT INFORMATION
  Report Type: Spontaneous
  Country: US (occurrence: US)
  Receive Date: 20250717
  Receipt Date: 20251118
  Transmission Date: 20260118
  Serious: No
  Sender: CONCORD BIOTECH LTD
  Company Number: US-CBL-003258

PATIENT
  Age: 27 Year
  Sex: Female

DRUGS (3)
  1. MYCOPHENOLATE MOFETIL [Suspect]
     Active Substance: MYCOPHENOLATE MOFETIL
     Indication: Nephrotic syndrome
     Dosage: DAILY DOSE:500 MG
     Route: 048
     Dates: start: 20240930, end: 202506
  2. PREDNISONE [Concomitant]
     Active Substance: PREDNISONE
     Indication: Nephrotic syndrome
     Route: 065
     Dates: start: 20240930, end: 202506
  3. LASIX [Concomitant]
     Active Substance: FUROSEMIDE
     Indication: Nephrotic syndrome
     Route: 065
     Dates: start: 20240930, end: 202506

REACTIONS (2)
  - Product use in unapproved indication [Unknown]
  - Exposure during pregnancy [Unknown]
